FAERS Safety Report 16313712 (Version 1)
Quarter: 2019Q2

REPORT INFORMATION
  Report Type: Spontaneous
  Country: US (occurrence: US)
  Receive Date: 20190515
  Receipt Date: 20190515
  Transmission Date: 20190711
  Serious: No
  Sender: FDA-Public Use
  Company Number: US-PFIZER INC-2019200861

PATIENT
  Sex: Female

DRUGS (3)
  1. DICLOFENAC EPOLAMINE [Suspect]
     Active Substance: DICLOFENAC EPOLAMINE
     Indication: BACK PAIN
     Dosage: UNK
  2. FLONASE [Suspect]
     Active Substance: FLUTICASONE PROPIONATE
     Indication: SINUSITIS
     Dosage: UNK
  3. MUCINEX SINUS-MAX FULL FORCE [Suspect]
     Active Substance: OXYMETAZOLINE HYDROCHLORIDE
     Indication: SINUSITIS
     Dosage: UNK

REACTIONS (3)
  - Oral discomfort [Recovering/Resolving]
  - Tongue discomfort [Recovering/Resolving]
  - Condition aggravated [Unknown]
